FAERS Safety Report 10153247 (Version 1)
Quarter: 2014Q2

REPORT INFORMATION
  Report Type: Report from Study
  Country: BR (occurrence: BR)
  Receive Date: 20140505
  Receipt Date: 20140505
  Transmission Date: 20141212
  Serious: Yes (Other)
  Sender: FDA-Public Use
  Company Number: BR-ABBVIE-14P-020-1233568-00

PATIENT
  Sex: Male
  Weight: 58 kg

DRUGS (6)
  1. DEPAKENE [Suspect]
     Indication: EPILEPSY
     Dates: start: 2004
  2. DEPAKENE [Suspect]
     Indication: EPILEPSY
     Dosage: FORM STRENGTH: 250MG/5ML, DAILY DOSE: 10 MILLILITER
  3. DEPAKENE [Suspect]
     Dosage: FORM STRENGTH: 250MG/5ML
  4. DEPAKENE [Suspect]
  5. DEPAKOTE [Suspect]
     Indication: EPILEPSY
     Dates: end: 201311
  6. DEPAKOTE [Concomitant]
     Indication: EPILEPSY
     Dates: start: 201311

REACTIONS (8)
  - Attention deficit/hyperactivity disorder [Not Recovered/Not Resolved]
  - Petit mal epilepsy [Recovered/Resolved]
  - Drug ineffective [Recovered/Resolved]
  - Seborrhoea [Not Recovered/Not Resolved]
  - Hair texture abnormal [Not Recovered/Not Resolved]
  - Rhinitis [Unknown]
  - Headache [Recovered/Resolved]
  - Off label use [Unknown]
